FAERS Safety Report 9607605 (Version 25)
Quarter: 2015Q4

REPORT INFORMATION
  Report Type: Report from Study
  Country: CA (occurrence: CA)
  Receive Date: 20131009
  Receipt Date: 20151123
  Transmission Date: 20160305
  Serious: Yes (Other)
  Sender: FDA-Public Use
  Company Number: PHHY2013CA112528

PATIENT
  Age: 52 Year
  Sex: Male

DRUGS (3)
  1. METHAMPHETAMINE [Concomitant]
     Active Substance: METHAMPHETAMINE
     Indication: PRODUCT USED FOR UNKNOWN INDICATION
     Route: 065
  2. SANDOSTATIN [Suspect]
     Active Substance: OCTREOTIDE ACETATE
     Indication: NEUROENDOCRINE TUMOUR
     Dosage: 50 UG, ONCE/SINGLE (TEST DOSE)
     Route: 058
     Dates: start: 20130926, end: 20130926
  3. SANDOSTATIN LAR DEPOT [Suspect]
     Active Substance: OCTREOTIDE ACETATE
     Indication: NEUROENDOCRINE BREAST TUMOUR
     Dosage: 30 MG, QMO (EVERY 4 WEEKS)
     Route: 030
     Dates: start: 20131010

REACTIONS (35)
  - Gastrointestinal carcinoma [Unknown]
  - Fall [Unknown]
  - Anger [Unknown]
  - Pain in extremity [Not Recovered/Not Resolved]
  - Flatulence [Not Recovered/Not Resolved]
  - Nausea [Unknown]
  - Drug dependence [Unknown]
  - Abdominal pain upper [Not Recovered/Not Resolved]
  - Blood pressure increased [Unknown]
  - Rib fracture [Unknown]
  - Cough [Unknown]
  - Hepatic cyst [Unknown]
  - Heart rate increased [Unknown]
  - Injection site discomfort [Unknown]
  - Suicidal ideation [Unknown]
  - Blood pressure fluctuation [Unknown]
  - Headache [Unknown]
  - Diarrhoea [Unknown]
  - Injection site pain [Unknown]
  - Restlessness [Unknown]
  - Insomnia [Unknown]
  - Vomiting [Unknown]
  - Abdominal pain [Unknown]
  - Dyspnoea [Unknown]
  - Paranoia [Unknown]
  - Anxiety [Unknown]
  - Gait disturbance [Unknown]
  - Wound infection [Unknown]
  - Contusion [Unknown]
  - Peripheral swelling [Unknown]
  - Rash erythematous [Unknown]
  - Fear of death [Unknown]
  - Feeling abnormal [Unknown]
  - Arthropod bite [Unknown]
  - Malaise [Unknown]

NARRATIVE: CASE EVENT DATE: 20131004
